FAERS Safety Report 14738044 (Version 3)
Quarter: 2018Q3

REPORT INFORMATION
  Report Type: Spontaneous
  Country: US (occurrence: US)
  Receive Date: 20180409
  Receipt Date: 20180703
  Transmission Date: 20181010
  Serious: Yes (Hospitalization, Other)
  Sender: FDA-Public Use
  Company Number: US-PFIZER INC-2018139999

PATIENT
  Age: 31 Year
  Sex: Male

DRUGS (1)
  1. ALPRAZOLAM. [Suspect]
     Active Substance: ALPRAZOLAM
     Indication: ANXIETY
     Dosage: 2.0 MG EXTENDED RELEASE TABLET EVERY 4 TO 6 HOURS
     Route: 048
     Dates: start: 2010

REACTIONS (11)
  - Road traffic accident [Unknown]
  - Feeding disorder [Unknown]
  - Myalgia [Unknown]
  - Confusional state [Unknown]
  - Drug dose omission [Unknown]
  - Prescribed overdose [Unknown]
  - Insomnia [Unknown]
  - Dizziness [Unknown]
  - Panic attack [Unknown]
  - Toxicity to various agents [Unknown]
  - Withdrawal syndrome [Unknown]

NARRATIVE: CASE EVENT DATE: 2010
